FAERS Safety Report 18361752 (Version 2)
Quarter: 2020Q4

REPORT INFORMATION
  Report Type: Other
  Country: US (occurrence: US)
  Receive Date: 20201008
  Receipt Date: 20201008
  Transmission Date: 20210114
  Serious: Yes (Life-Threatening, Hospitalization)
  Sender: FDA-Public Use
  Company Number: US-SERVIER-S20008884

PATIENT

DRUGS (7)
  1. TN UNSPECIFIED [MITOXANTRONE HYDROCHLORIDE] [Suspect]
     Active Substance: MITOXANTRONE HYDROCHLORIDE
     Indication: ACUTE LYMPHOCYTIC LEUKAEMIA
     Dosage: 10 MG/M2 DAYS 8-9
     Route: 065
  2. TN UNSPECIFIED [VORINOSTAT] [Suspect]
     Active Substance: VORINOSTAT
     Indication: ACUTE LYMPHOCYTIC LEUKAEMIA
     Dosage: 180 MG/M2 ORAL DAYS 2-7 AND 16-21
     Route: 048
  3. TN UNSPECIFIED [DEXAMETHASONE] [Suspect]
     Active Substance: DEXAMETHASONE
     Indication: ACUTE LYMPHOCYTIC LEUKAEMIA
     Dosage: 20MG/M2 DAYS 8-12 AND 22-26
     Route: 065
  4. TN UNSPECIFIED [METHOTREXATE SODIUM] [Suspect]
     Active Substance: METHOTREXATE SODIUM
     Indication: ACUTE LYMPHOCYTIC LEUKAEMIA
     Dosage: UNK
     Route: 065
  5. ONCASPAR [Suspect]
     Active Substance: PEGASPARGASE
     Indication: ACUTE LYMPHOCYTIC LEUKAEMIA
     Dosage: 2500 IU/M2 DAYS 10, 24
     Route: 065
  6. TN UNSPECIFIED (DECITABINE) [Suspect]
     Active Substance: DECITABINE
     Indication: ACUTE LYMPHOCYTIC LEUKAEMIA
     Dosage: 10 MG/M2 IV DAYS 1-5 AND 15-19
     Route: 041
  7. TN UNSPECIFIED [VINCRISTINE SULFATE] [Suspect]
     Active Substance: VINCRISTINE SULFATE
     Indication: ACUTE LYMPHOCYTIC LEUKAEMIA
     Dosage: 1.5 MG/M2 DAYS 10,17,24,31
     Route: 065

REACTIONS (3)
  - Klebsiella infection [Unknown]
  - Candida sepsis [Unknown]
  - Clostridium difficile colitis [Unknown]

NARRATIVE: CASE EVENT DATE: 2020
